FAERS Safety Report 7178887-1 (Version None)
Quarter: 2010Q4

REPORT INFORMATION
  Report Type: 
  Country: None (occurrence: None)
  Receive Date: 20101221
  Receipt Date: 20101216
  Transmission Date: 20110411
  Serious: No
  Sender: FDA-Public Use
  Company Number: US-ROXANE LABORATORIES, INC.-2010-RO-01710RO

PATIENT
  Sex: Female

DRUGS (3)
  1. FLUTICASONE PROPIONATE [Suspect]
     Indication: NASOPHARYNGITIS
     Route: 045
     Dates: start: 20100701, end: 20101215
  2. FLUTICASONE PROPIONATE [Suspect]
     Indication: EAR PAIN
  3. BLOOD PRESSURE MEDICATION [Concomitant]
     Indication: HYPERTENSION

REACTIONS (2)
  - AGEUSIA [None]
  - ANOSMIA [None]
